FAERS Safety Report 9971900 (Version 1)
Quarter: 2014Q1

REPORT INFORMATION
  Report Type: Report from Study
  Country: US (occurrence: US)
  Receive Date: 20140306
  Receipt Date: 20140306
  Transmission Date: 20141002
  Serious: No
  Sender: FDA-Public Use
  Company Number: US-ABBVIE-13P-163-1148304-00

PATIENT
  Age: 30 Year
  Sex: Female

DRUGS (3)
  1. HUMIRA [Suspect]
     Indication: CROHN^S DISEASE
     Dates: start: 20130620
  2. HUMIRA [Suspect]
     Dates: start: 20130830
  3. EYE DROPS [Concomitant]
     Indication: HYPERSENSITIVITY

REACTIONS (2)
  - Memory impairment [Recovered/Resolved]
  - Drug dose omission [Recovered/Resolved]
